FAERS Safety Report 7330329-9 (Version None)
Quarter: 2011Q1

REPORT INFORMATION
  Report Type: 
  Country: None (occurrence: None)
  Receive Date: 20110304
  Receipt Date: 20110222
  Transmission Date: 20110831
  Serious: Yes (Other)
  Sender: FDA-Public Use
  Company Number: BR-AMGEN-BRASP2011011128

PATIENT
  Age: 30 Year
  Sex: Male
  Weight: 90 kg

DRUGS (6)
  1. CALCIUM WITH VITAMIN D             /00944201/ [Concomitant]
     Indication: PROPHYLAXIS
     Dosage: 2X/DAY
     Dates: start: 20090101
  2. FOLIC ACID [Concomitant]
     Indication: PRODUCT USED FOR UNKNOWN INDICATION
     Dosage: 5 MG, 1X/WEEK
     Dates: start: 20090101
  3. ENBREL [Suspect]
     Indication: RHEUMATOID ARTHRITIS
     Dosage: 50 MG, 1X/WEEK
     Route: 058
     Dates: start: 20101201
  4. HYDROCHLOROTHIAZIDE [Concomitant]
     Indication: HYPERTENSION
     Dosage: 50 MG, 1X/DAY
     Dates: start: 20100101
  5. OMEPRAZOLE [Concomitant]
     Indication: PROPHYLAXIS
     Dosage: 20 MG, 1X/DAY
     Dates: start: 20090101
  6. PREDNISONE [Concomitant]
     Indication: PAIN
     Dosage: 5 MG, 1X/DAY
     Dates: start: 20090101

REACTIONS (8)
  - ERYTHEMA [None]
  - SWELLING [None]
  - PAIN IN EXTREMITY [None]
  - ARTHRALGIA [None]
  - INJECTION SITE WARMTH [None]
  - INCORRECT PRODUCT STORAGE [None]
  - POOR QUALITY DRUG ADMINISTERED [None]
  - DRUG INEFFECTIVE [None]
